FAERS Safety Report 8511042-9 (Version None)
Quarter: 2012Q3

REPORT INFORMATION
  Report Type: 
  Country: None (occurrence: None)
  Receive Date: 20120705
  Receipt Date: 20120619
  Transmission Date: 20120928
  Serious: Yes (Hospitalization, Other)
  Sender: FDA-Public Use
  Company Number: FK201201776

PATIENT
  Age: 24 Year
  Sex: Female

DRUGS (7)
  1. CISPLATIN [Suspect]
     Indication: OVARIAN CANCER
     Dosage: 90 MG/M2, INTRAVENOUS (NOT OTHERWISE SPECIFIED)
     Route: 042
  2. CYCLOPHOSPHAMIDE [Suspect]
     Indication: OVARIAN CANCER
     Dosage: 1000 MG/M2, INTRAVENOUS (NOT OTHERWISE SPECIFIED)
     Route: 042
  3. ETOPOSIDE [Suspect]
     Indication: OVARIAN CANCER
     Dosage: 200 MG/M2, INTRAVENOUS (NOT OTHERWISE SPECIFIED)
     Route: 042
  4. BLEOMYCIN SULFATE [Suspect]
     Indication: OVARIAN CANCER
     Dosage: 15, UNITS/M2, INTRAVENOUS (NOT OTHERWISE SPECIFIED)
     Route: 042
  5. VINBLASTINE SULFATE [Suspect]
     Indication: OVARIAN CANCER
     Dosage: 6 MG/M2, INTRAVENOUS (NOT OTHERWISE SPECIFIED)
     Route: 042
  6. PEGFILGRASTIM (PEGFILGRASTIM) [Concomitant]
  7. DOXORUBICIN HCL [Suspect]
     Indication: OVARIAN CANCER
     Dosage: 45 MG/M2, INTRAVENOUS (NOT OTHERWISE SPECIFIED)
     Route: 042

REACTIONS (3)
  - MUCOSAL INFLAMMATION [None]
  - CELLULITIS [None]
  - PANCYTOPENIA [None]
